FAERS Safety Report 20020004 (Version 1)
Quarter: 2021Q4

REPORT INFORMATION
  Report Type: Spontaneous
  Country: US (occurrence: US)
  Receive Date: 20211101
  Receipt Date: 20211101
  Transmission Date: 20220303
  Serious: No
  Sender: FDA-Public Use
  Company Number: US-SUN PHARMACEUTICAL INDUSTRIES LTD-2021R1-287865

PATIENT
  Sex: Female

DRUGS (1)
  1. PSEUDOEPHEDRINE [Suspect]
     Active Substance: PSEUDOEPHEDRINE
     Indication: Nasopharyngitis
     Dosage: UNK
     Route: 065

REACTIONS (1)
  - Drug ineffective [Unknown]
